FAERS Safety Report 20349549 (Version 1)
Quarter: 2022Q1

REPORT INFORMATION
  Report Type: Spontaneous
  Country: DK (occurrence: DK)
  Receive Date: 20220119
  Receipt Date: 20220119
  Transmission Date: 20220423
  Serious: Yes (Hospitalization)
  Sender: FDA-Public Use
  Company Number: None

PATIENT
  Age: 69 Year
  Sex: Female
  Weight: 68 kg

DRUGS (1)
  1. ALBUTEROL SULFATE [Suspect]
     Active Substance: ALBUTEROL SULFATE
     Indication: Respiratory syncytial virus infection
     Dosage: 400 UG, QD (STRENGTH: 100 ?G/DOSE)
     Route: 055
     Dates: start: 20211004, end: 20211013

REACTIONS (3)
  - Movement disorder [Recovering/Resolving]
  - Loss of consciousness [Recovered/Resolved]
  - Dizziness [Recovering/Resolving]

NARRATIVE: CASE EVENT DATE: 20211001
